FAERS Safety Report 5404833-4 (Version None)
Quarter: 2007Q3

REPORT INFORMATION
  Report Type: 
  Country: None (occurrence: None)
  Receive Date: 20070803
  Receipt Date: 20070730
  Transmission Date: 20080115
  Serious: Yes (Hospitalization, Disabling)
  Sender: FDA-Public Use
  Company Number: PHRM2007FR01942

PATIENT
  Age: 70 Year
  Sex: Male

DRUGS (8)
  1. ZOMETA [Suspect]
     Indication: MULTIPLE MYELOMA
     Route: 042
     Dates: start: 20040602, end: 20060428
  2. PAMIDRONIC ACID [Suspect]
     Indication: MULTIPLE MYELOMA
     Dosage: UNK, UNK
     Route: 042
     Dates: start: 20060519, end: 20060705
  3. VELCADE [Concomitant]
     Indication: MULTIPLE MYELOMA
     Route: 042
  4. ARANESP [Concomitant]
     Indication: ANAEMIA
     Route: 058
     Dates: start: 20060317
  5. NEO-MERCAZOLE /SCH/ [Concomitant]
     Indication: HYPERTHYROIDISM
     Route: 048
  6. CARDENSIEL [Concomitant]
  7. PREVISCAN [Concomitant]
     Indication: ISCHAEMIC CARDIOMYOPATHY
     Route: 048
     Dates: start: 19930101
  8. LEVOTHYROXINE SODIUM [Concomitant]
     Indication: HYPERTHYROIDISM
     Route: 048

REACTIONS (1)
  - OSTEONECROSIS [None]
